FAERS Safety Report 4429759-4 (Version None)
Quarter: 2004Q3

REPORT INFORMATION
  Report Type: 
  Country: None (occurrence: None)
  Receive Date: 20040818
  Receipt Date: 20040818
  Transmission Date: 20050211
  Serious: Yes (Life-Threatening)
  Sender: FDA-Public Use
  Company Number: None

PATIENT
  Age: 40 Year
  Sex: Female
  Weight: 49.8957 kg

DRUGS (1)
  1. ZOLOFT [Suspect]
     Indication: POSTPARTUM DEPRESSION
     Dosage: 100 MG DAILY
     Dates: start: 20010910, end: 20040817

REACTIONS (6)
  - AGITATION [None]
  - DISTURBANCE IN ATTENTION [None]
  - DRUG WITHDRAWAL SYNDROME [None]
  - HOSTILITY [None]
  - RESTLESSNESS [None]
  - SUICIDAL IDEATION [None]
